FAERS Safety Report 25763589 (Version 1)
Quarter: 2025Q3

REPORT INFORMATION
  Report Type: Spontaneous
  Country: US (occurrence: US)
  Receive Date: 20250905
  Receipt Date: 20250905
  Transmission Date: 20251021
  Serious: No
  Sender: DOMPE FARMACEUTICI
  Company Number: US-FARMAPROD-202410-3693

PATIENT
  Age: 66 Year
  Sex: Female

DRUGS (13)
  1. OXERVATE [Suspect]
     Active Substance: CENEGERMIN-BKBJ
     Indication: Neurotrophic keratopathy
     Route: 047
     Dates: start: 20241015
  2. VITAMIN B12 [Concomitant]
     Active Substance: CYANOCOBALAMIN
  3. DIETARY SUPPLEMENT [Concomitant]
     Active Substance: DIETARY SUPPLEMENT
  4. ZINC-15 [Concomitant]
  5. HERBALS\WITHANIA SOMNIFERA ROOT [Concomitant]
     Active Substance: HERBALS\WITHANIA SOMNIFERA ROOT
  6. FISH OIL [Concomitant]
     Active Substance: FISH OIL
  7. MAGNESIUM GLUCONATE [Concomitant]
     Active Substance: MAGNESIUM GLUCONATE
  8. CALCIUM [Concomitant]
     Active Substance: CALCIUM
  9. MULTI-VITAMIN DAILY [Concomitant]
  10. METRONIDAZOLE [Concomitant]
     Active Substance: METRONIDAZOLE
  11. BRINZOLAMIDE [Concomitant]
     Active Substance: BRINZOLAMIDE
  12. TIMOLOL MALEATE [Concomitant]
     Active Substance: TIMOLOL MALEATE
  13. LUMIGAN [Concomitant]
     Active Substance: BIMATOPROST

REACTIONS (2)
  - Eye irritation [Unknown]
  - Eye pain [Unknown]

NARRATIVE: CASE EVENT DATE: 20241016
